FAERS Safety Report 9924930 (Version 3)
Quarter: 2014Q1

REPORT INFORMATION
  Report Type: Spontaneous
  Country: JP (occurrence: JP)
  Receive Date: 20140226
  Receipt Date: 20140317
  Transmission Date: 20141002
  Serious: Yes (Hospitalization)
  Sender: FDA-Public Use
  Company Number: JP-SA-2014SA022159

PATIENT
  Age: 73 Year
  Sex: Female
  Weight: 39 kg

DRUGS (7)
  1. DELLEGRA [Suspect]
     Indication: SINUSITIS
     Dosage: 2 TABLETS IN THE MORNING AND 1 TABLET IN?THE EVENING.
     Route: 048
     Dates: start: 20140128, end: 20140128
  2. DELLEGRA [Suspect]
     Indication: RHINITIS ALLERGIC
     Dosage: 2 TABLETS IN THE MORNING AND 1 TABLET IN?THE EVENING.
     Route: 048
     Dates: start: 20140128, end: 20140128
  3. AMARYL [Concomitant]
     Indication: DIABETES MELLITUS
     Route: 048
  4. JANUVIA [Concomitant]
     Indication: DIABETES MELLITUS
  5. DEPAS [Concomitant]
  6. MUCODYNE [Concomitant]
  7. CRAVIT [Concomitant]

REACTIONS (3)
  - Dysarthria [Recovered/Resolved]
  - Tremor [Recovered/Resolved]
  - Feeling abnormal [Recovered/Resolved]
